FAERS Safety Report 9297764 (Version 2)
Quarter: 2013Q2

REPORT INFORMATION
  Report Type: Report from Study
  Country: BE (occurrence: BE)
  Receive Date: 20130520
  Receipt Date: 20130628
  Transmission Date: 20140414
  Serious: Yes (Death)
  Sender: FDA-Public Use
  Company Number: PHHY2013BE049724

PATIENT
  Age: 58 Year
  Sex: Female

DRUGS (8)
  1. SANDOSTATINE LAR [Suspect]
     Indication: CARCINOID TUMOUR
     Dosage: 20 MG, EVERY 4 WEEKS
     Route: 030
     Dates: start: 20081111, end: 200901
  2. SANDOSTATINE LAR [Suspect]
     Dosage: 20 MG, EVERY 3 WEEKS
     Route: 030
     Dates: start: 200902
  3. SANDOSTATINE LAR [Suspect]
     Dosage: 30 MG, EVERY 2 WEEKS
  4. SANDOSTATINE LAR [Suspect]
     Dosage: 20 MG, EVERY 3 WEEKS
     Route: 030
     Dates: end: 201006
  5. SANDOSTATINE LAR [Suspect]
     Dosage: 20 MG, EVERY 3 WEEKS
     Route: 030
     Dates: start: 20101201, end: 201103
  6. SANDOSTATINE LAR [Suspect]
     Dosage: 20 MG, EVERY 3 WEEKS
     Dates: start: 201104
  7. SANDOSTATINE LAR [Suspect]
     Dosage: 30 MG, EVERY 3 WEEKS
     Dates: start: 20110415
  8. OCTREOTIDE [Concomitant]
     Indication: CARCINOID TUMOUR
     Dosage: UNK
     Dates: start: 20100721, end: 20101005

REACTIONS (6)
  - Malignant neoplasm progression [Fatal]
  - Respiratory failure [Fatal]
  - Generalised oedema [Fatal]
  - Thrombocytopenia [Unknown]
  - Drug intolerance [Unknown]
  - Diarrhoea [Unknown]
